FAERS Safety Report 9986027 (Version 1)
Quarter: 2014Q1

REPORT INFORMATION
  Report Type: Report from Study
  Country: US (occurrence: US)
  Receive Date: 20140307
  Receipt Date: 20140307
  Transmission Date: 20141002
  Serious: No
  Sender: FDA-Public Use
  Company Number: US-ABBVIE-13P-163-1089302-00

PATIENT
  Age: 45 Year
  Sex: Female
  Weight: 80.81 kg

DRUGS (10)
  1. HUMIRA [Suspect]
     Indication: COLITIS ULCERATIVE
     Dates: start: 201304
  2. HUMIRA [Suspect]
     Indication: ARTHROPATHY
  3. ESTRADIOL [Concomitant]
     Indication: HORMONE REPLACEMENT THERAPY
  4. PROTONIX [Concomitant]
     Indication: GASTROOESOPHAGEAL REFLUX DISEASE
  5. CYMBALTA [Concomitant]
     Indication: DEPRESSION
  6. CYMBALTA [Concomitant]
     Indication: FIBROMYALGIA
  7. XANAX [Concomitant]
     Indication: ANXIETY
  8. HYDROMORPHONE [Concomitant]
     Indication: PAIN
  9. PRIMIDONE [Concomitant]
     Indication: TREMOR
  10. PHENERGAN [Concomitant]
     Indication: NAUSEA

REACTIONS (3)
  - Lethargy [Not Recovered/Not Resolved]
  - Flushing [Not Recovered/Not Resolved]
  - Headache [Not Recovered/Not Resolved]
